FAERS Safety Report 21227937 (Version 1)
Quarter: 2022Q3

REPORT INFORMATION
  Report Type: Spontaneous
  Country: US (occurrence: None)
  Receive Date: 20220818
  Receipt Date: 20220818
  Transmission Date: 20221027
  Serious: No
  Sender: FDA-Public Use
  Company Number: 2022A263431

PATIENT
  Sex: Female
  Weight: 30.9 kg

DRUGS (9)
  1. CRESTOR [Suspect]
     Active Substance: ROSUVASTATIN CALCIUM
     Route: 048
  2. PAXLOVID [Suspect]
     Active Substance: NIRMATRELVIR\RITONAVIR
     Route: 065
  3. ADDERALL [Concomitant]
     Active Substance: AMPHETAMINE ASPARTATE\AMPHETAMINE SULFATE\DEXTROAMPHETAMINE SACCHARATE\DEXTROAMPHETAMINE SULFATE
     Route: 065
  4. TOPIRAMATE [Concomitant]
     Active Substance: TOPIRAMATE
     Indication: Migraine
     Route: 065
  5. METOPROLOL SUCCINATE [Concomitant]
     Active Substance: METOPROLOL SUCCINATE
     Route: 065
  6. HYDROCODON/ ACETAMINOPHEN [Concomitant]
     Route: 065
  7. ALPRAZOLAM [Concomitant]
     Active Substance: ALPRAZOLAM
     Route: 065
  8. XYZAL [Concomitant]
     Active Substance: LEVOCETIRIZINE DIHYDROCHLORIDE
     Indication: Hypersensitivity
     Route: 065
  9. IMVEXXY [Concomitant]
     Active Substance: ESTRADIOL
     Route: 065

REACTIONS (9)
  - Pain in extremity [Unknown]
  - Ligament sprain [Unknown]
  - Drug interaction [Unknown]
  - Tendon pain [Unknown]
  - Mobility decreased [Unknown]
  - Muscular weakness [Unknown]
  - Condition aggravated [Unknown]
  - Weight decreased [Unknown]
  - Back pain [Unknown]
